FAERS Safety Report 6847485-9 (Version None)
Quarter: 2010Q3

REPORT INFORMATION
  Report Type: 
  Country: None (occurrence: None)
  Receive Date: 20100716
  Receipt Date: 20100707
  Transmission Date: 20110219
  Serious: Yes (Other)
  Sender: FDA-Public Use
  Company Number: DE-PFIZER INC-2010084660

PATIENT
  Age: 57 Year
  Sex: Male

DRUGS (2)
  1. CABERGOLINE [Suspect]
     Indication: RESTLESS LEGS SYNDROME
     Dosage: 2 MG, 1X/DAY
     Route: 048
     Dates: start: 20000101
  2. CHOLESTEROL [Concomitant]

REACTIONS (7)
  - CARDIAC VALVE DISEASE [None]
  - DEPRESSION [None]
  - DYSPNOEA [None]
  - FLUID RETENTION [None]
  - IMPULSE-CONTROL DISORDER [None]
  - PATHOLOGICAL GAMBLING [None]
  - SUICIDE ATTEMPT [None]
